FAERS Safety Report 20709800 (Version 1)
Quarter: 2022Q2

REPORT INFORMATION
  Report Type: Spontaneous
  Country: US (occurrence: US)
  Receive Date: 20220414
  Receipt Date: 20220414
  Transmission Date: 20220720
  Serious: Yes (Other)
  Sender: FDA-Public Use
  Company Number: US-PFIZER INC-202200529812

PATIENT
  Age: 59 Year
  Sex: Female

DRUGS (4)
  1. XELJANZ XR [Suspect]
     Active Substance: TOFACITINIB CITRATE
     Indication: Rheumatoid arthritis
     Dosage: UNK
  2. REMICADE [Concomitant]
     Active Substance: INFLIXIMAB
     Indication: Gastrointestinal disorder
     Dosage: UNK
  3. HUMIRA [Concomitant]
     Active Substance: ADALIMUMAB
     Indication: Gastrointestinal disorder
     Dosage: UNK
  4. RITUXAN [Concomitant]
     Active Substance: RITUXIMAB
     Indication: Gastrointestinal disorder
     Dosage: UNK

REACTIONS (10)
  - Cataract [Unknown]
  - Mental impairment [Unknown]
  - Spinal disorder [Unknown]
  - Skin discolouration [Unknown]
  - Blood pressure abnormal [Unknown]
  - Inflammation [Unknown]
  - Thoracic outlet syndrome [Unknown]
  - Motor dysfunction [Unknown]
  - Condition aggravated [Unknown]
  - Cognitive disorder [Unknown]

NARRATIVE: CASE EVENT DATE: 20210101
